FAERS Safety Report 5485354-X (Version None)
Quarter: 2007Q4

REPORT INFORMATION
  Report Type: 
  Country: None (occurrence: None)
  Receive Date: 20071015
  Receipt Date: 20071010
  Transmission Date: 20080405
  Serious: Yes (Disabling)
  Sender: FDA-Public Use
  Company Number: FR-BRISTOL-MYERS SQUIBB COMPANY-13935770

PATIENT
  Age: 81 Year
  Sex: Female

DRUGS (4)
  1. ELISOR TABS [Suspect]
     Indication: HYPERCHOLESTEROLAEMIA
     Dates: start: 20030401, end: 20070504
  2. FOSAMAX [Concomitant]
     Route: 048
  3. DAFALGAN CODEINE [Concomitant]
     Route: 048
     Dates: start: 20070417
  4. LOVENOX [Concomitant]
     Route: 058
     Dates: start: 20070424

REACTIONS (3)
  - FALL [None]
  - MYALGIA [None]
  - MYOSITIS [None]
